FAERS Safety Report 9744115 (Version 1)
Quarter: 2013Q4

REPORT INFORMATION
  Report Type: Spontaneous
  Country: GB (occurrence: GB)
  Receive Date: 20131210
  Receipt Date: 20131210
  Transmission Date: 20140711
  Serious: Yes (Other)
  Sender: FDA-Public Use
  Company Number: PHHY2013GB141331

PATIENT
  Age: 59 Year
  Sex: Female
  Weight: 60 kg

DRUGS (8)
  1. BISOPROLOL [Suspect]
     Indication: ATRIAL FIBRILLATION
     Dosage: 1.25 MG, QD
     Route: 048
  2. TRIMETHOPRIM [Suspect]
     Indication: URINARY TRACT INFECTION
     Dosage: 200 MG, BID
     Route: 048
     Dates: start: 20130830
  3. PALIPERIDONE [Suspect]
     Indication: SCHIZOPHRENIA
     Dosage: 150 MG, UNK
     Route: 030
  4. CARBAMAZEPINE [Concomitant]
     Indication: AFFECTIVE DISORDER
     Dosage: 800 MG, QD, AT NIGHT
     Route: 048
  5. VALPROIC ACID [Concomitant]
     Indication: AFFECTIVE DISORDER
     Dosage: 1500 MG, QD, AT NIGHT
     Route: 048
  6. LORAZEPAM [Concomitant]
     Dosage: 2 MG, TID
     Route: 048
  7. RISPERIDONE [Concomitant]
     Dosage: 6 MG, QD, 2 MG IN THE MORNING, 4 MG AT NIGHT
     Route: 048
  8. CARBIMAZOLE [Concomitant]
     Dosage: 20 MG, QD, IN THE MORNING
     Route: 048

REACTIONS (2)
  - Bradycardia [Recovered/Resolved]
  - Toxicity to various agents [Recovered/Resolved]
